FAERS Safety Report 7532945-8 (Version None)
Quarter: 2011Q2

REPORT INFORMATION
  Report Type: 
  Country: None (occurrence: None)
  Receive Date: 20110608
  Receipt Date: 20110602
  Transmission Date: 20111010
  Serious: Yes (Death)
  Sender: FDA-Public Use
  Company Number: US-CELGENEUS-163-21880-11032645

PATIENT
  Sex: Male
  Weight: 90.8 kg

DRUGS (7)
  1. COUMADIN [Concomitant]
     Dosage: 5 MILLIGRAM
     Route: 048
     Dates: start: 20100428, end: 20110305
  2. REVLIMID [Suspect]
     Indication: MULTIPLE MYELOMA
     Dosage: 25 MILLIGRAM
     Route: 048
     Dates: start: 20100203, end: 20110120
  3. ZOLOFT [Concomitant]
     Dosage: 50 MILLIGRAM
     Route: 065
  4. VELCADE [Concomitant]
     Route: 051
     Dates: start: 20091104, end: 20110119
  5. DOXIL [Concomitant]
     Route: 051
     Dates: start: 20110209
  6. POTASSIUM CHLORIDE [Concomitant]
     Dosage: 20 MILLIEQUIVALENTS
     Route: 065
  7. LASIX [Concomitant]
     Dosage: 40 MILLIGRAM
     Route: 065

REACTIONS (3)
  - PLEURAL HAEMORRHAGE [None]
  - MULTIPLE MYELOMA [None]
  - RESPIRATORY FAILURE [None]
